FAERS Safety Report 9806318 (Version 2)
Quarter: 2014Q1

REPORT INFORMATION
  Report Type: Report from Study
  Country: AU (occurrence: AU)
  Receive Date: 20140109
  Receipt Date: 20140109
  Transmission Date: 20141002
  Serious: Yes (Other)
  Sender: FDA-Public Use
  Company Number: AU-BRISTOL-MYERS SQUIBB COMPANY-18985127

PATIENT
  Age: 60 Year
  Sex: Male

DRUGS (1)
  1. SPRYCEL (CML) TABS 100 MG [Suspect]
     Indication: CHRONIC MYELOID LEUKAEMIA
     Dosage: HALVING THE DOSE FOR 7 DAYS
     Dates: start: 20121207

REACTIONS (7)
  - Basal cell carcinoma [Recovering/Resolving]
  - Squamous cell carcinoma [Recovering/Resolving]
  - Hyperkeratosis [Unknown]
  - Dry skin [Recovering/Resolving]
  - Eczema [Unknown]
  - Rash macular [Unknown]
  - Fatigue [Unknown]
